FAERS Safety Report 19391850 (Version 4)
Quarter: 2021Q3

REPORT INFORMATION
  Report Type: Report from Study
  Country: US (occurrence: US)
  Receive Date: 20210609
  Receipt Date: 20210809
  Transmission Date: 20211014
  Serious: Yes (Hospitalization)
  Sender: FDA-Public Use
  Company Number: US-BIOGEN-2021BI01018512

PATIENT
  Age: 65 Year
  Sex: Female

DRUGS (2)
  1. TYSABRI [Suspect]
     Active Substance: NATALIZUMAB
     Indication: MULTIPLE SCLEROSIS
     Route: 065
     Dates: start: 20070119, end: 20210419
  2. TYSABRI [Suspect]
     Active Substance: NATALIZUMAB
     Dosage: INFUSE OVER 1 HR
     Route: 065
     Dates: start: 202104

REACTIONS (6)
  - Product dose omission issue [Unknown]
  - Gait disturbance [Unknown]
  - Prescribed underdose [Not Recovered/Not Resolved]
  - Deep vein thrombosis [Recovered/Resolved]
  - Infection [Unknown]
  - Dysstasia [Unknown]

NARRATIVE: CASE EVENT DATE: 20210601
